FAERS Safety Report 9668587 (Version 1)
Quarter: 2013Q4

REPORT INFORMATION
  Report Type: Spontaneous
  Country: FR (occurrence: FR)
  Receive Date: 20131105
  Receipt Date: 20131105
  Transmission Date: 20140711
  Serious: Yes (Hospitalization)
  Sender: FDA-Public Use
  Company Number: FR-JNJFOC-20131018937

PATIENT
  Age: 91 Year
  Sex: Female

DRUGS (8)
  1. TOPALGIC [Suspect]
     Indication: PAIN
     Route: 048
     Dates: start: 20130619, end: 20130621
  2. TOPALGIC [Suspect]
     Indication: PAIN
     Route: 048
     Dates: start: 201306, end: 20130619
  3. MIANSERIN [Suspect]
     Indication: INSOMNIA
     Route: 048
  4. MIANSERIN [Suspect]
     Indication: INSOMNIA
     Route: 048
     Dates: start: 201306
  5. IMOVANE [Suspect]
     Indication: INSOMNIA
     Route: 048
     Dates: start: 201306
  6. DAFALGAN [Concomitant]
     Indication: PRODUCT USED FOR UNKNOWN INDICATION
     Route: 048
     Dates: start: 201306
  7. DAFALGAN [Concomitant]
     Indication: PRODUCT USED FOR UNKNOWN INDICATION
     Route: 048
     Dates: end: 201306
  8. MIANSERIN [Concomitant]
     Indication: PRODUCT USED FOR UNKNOWN INDICATION
     Route: 065
     Dates: end: 201306

REACTIONS (5)
  - Lung disorder [Recovered/Resolved]
  - Fall [Recovered/Resolved]
  - Somnolence [Recovered/Resolved]
  - Confusional state [Recovered/Resolved]
  - Fracture [Recovered/Resolved]
